FAERS Safety Report 23979837 (Version 3)
Quarter: 2024Q3

REPORT INFORMATION
  Report Type: Report from Study
  Country: US (occurrence: US)
  Receive Date: 20240616
  Receipt Date: 20240816
  Transmission Date: 20241017
  Serious: Yes (Other)
  Sender: ABBVIE
  Company Number: US-ABBVIE-5799941

PATIENT
  Sex: Female
  Weight: 70.307 kg

DRUGS (1)
  1. RINVOQ [Suspect]
     Active Substance: UPADACITINIB
     Indication: Colitis ulcerative
     Route: 048

REACTIONS (4)
  - Pouchitis [Unknown]
  - Colitis ulcerative [Unknown]
  - Anal fissure [Unknown]
  - Pain [Unknown]
